FAERS Safety Report 7308234-3 (Version None)
Quarter: 2011Q1

REPORT INFORMATION
  Report Type: 
  Country: None (occurrence: None)
  Receive Date: 20110223
  Receipt Date: 20110215
  Transmission Date: 20110831
  Serious: Yes (Hospitalization)
  Sender: FDA-Public Use
  Company Number: US-ASTRAZENECA-2011SE08938

PATIENT
  Age: 68 Year
  Sex: Male

DRUGS (1)
  1. SYMBICORT [Suspect]
     Dosage: 160/ 4.5 MCG ONE PUFF BID
     Route: 055

REACTIONS (1)
  - HEART RATE IRREGULAR [None]
